FAERS Safety Report 11272047 (Version 1)
Quarter: 2015Q2

REPORT INFORMATION
  Report Type: Spontaneous
  Country: US (occurrence: None)
  Receive Date: 20150625
  Receipt Date: 20150625
  Transmission Date: 20150821
  Serious: No
  Sender: FDA-Public Use
  Company Number: A-NJ2014-109152

PATIENT
  Age: 70 Year
  Sex: Female

DRUGS (4)
  1. OPSUMIT [Suspect]
     Active Substance: MACITENTAN
     Indication: PULMONARY ARTERIAL HYPERTENSION
     Route: 048
  2. WARFARIN [Concomitant]
     Active Substance: WARFARIN
  3. FLOLAN [Concomitant]
     Active Substance: EPOPROSTENOL SODIUM
  4. REVATIO (SILDENAFIL CITRATE) [Concomitant]

REACTIONS (3)
  - Nausea [None]
  - Headache [None]
  - Pain in jaw [None]
